FAERS Safety Report 12108407 (Version 1)
Quarter: 2016Q1

REPORT INFORMATION
  Report Type: Report from Study
  Country: ZA (occurrence: ZA)
  Receive Date: 20160224
  Receipt Date: 20160224
  Transmission Date: 20160526
  Serious: Yes (Other)
  Sender: FDA-Public Use
  Company Number: ZA-AMGEN-ZAFSL2016021872

PATIENT
  Age: 41 Year
  Sex: Female

DRUGS (1)
  1. SENSIPAR [Suspect]
     Active Substance: CINACALCET HYDROCHLORIDE
     Indication: HYPERPARATHYROIDISM
     Dosage: 30 MG, QD
     Route: 048
     Dates: start: 20140210, end: 201511

REACTIONS (2)
  - Parathyroidectomy [Not Recovered/Not Resolved]
  - Blood parathyroid hormone increased [Not Recovered/Not Resolved]

NARRATIVE: CASE EVENT DATE: 201511
